FAERS Safety Report 5066702-1 (Version None)
Quarter: 2006Q3

REPORT INFORMATION
  Report Type: 
  Country: None (occurrence: None)
  Receive Date: 20060801
  Receipt Date: 20060727
  Transmission Date: 20061208
  Serious: Yes (Hospitalization)
  Sender: FDA-Public Use
  Company Number: FR-GLAXOSMITHKLINE-B0432379A

PATIENT
  Age: 47 Year
  Sex: Female

DRUGS (2)
  1. DEROXAT [Suspect]
     Dosage: 20MG PER DAY
     Route: 048
     Dates: start: 20020228, end: 20050101
  2. XANAX [Concomitant]
     Route: 065

REACTIONS (2)
  - GALACTORRHOEA [None]
  - HYPERPROLACTINAEMIA [None]
